FAERS Safety Report 5195949-9 (Version None)
Quarter: 2006Q4

REPORT INFORMATION
  Report Type: 
  Country: None (occurrence: None)
  Receive Date: 20061227
  Receipt Date: 20061227
  Transmission Date: 20070319
  Serious: Yes (Life-Threatening, Hospitalization)
  Sender: FDA-Public Use
  Company Number: None

PATIENT
  Age: 88 Year
  Sex: Female
  Weight: 52 kg

DRUGS (1)
  1. MOXIFLOXACIN 400MG [Suspect]
     Indication: URINARY TRACT INFECTION
     Dosage: 400MG DAILY PO
     Route: 048

REACTIONS (5)
  - CLOSTRIDIAL INFECTION [None]
  - HYPOTENSION [None]
  - SEPSIS [None]
  - TACHYCARDIA [None]
  - WHITE BLOOD CELL COUNT INCREASED [None]
